FAERS Safety Report 4299015-6 (Version None)
Quarter: 2004Q1

REPORT INFORMATION
  Report Type: 
  Country: None (occurrence: None)
  Receive Date: 20040217
  Receipt Date: 20040202
  Transmission Date: 20041129
  Serious: No
  Sender: FDA-Public Use
  Company Number: A01200400550

PATIENT

DRUGS (4)
  1. TALWIN [Suspect]
     Dosage: ORAL
     Route: 048
  2. DEMEROL [Suspect]
  3. RISPERDAL [Suspect]
  4. GRAVOL - (DIMENHYDRINATE) - SOLUTION [Suspect]
     Dosage: INTRAVENOUS NOS
     Route: 042

REACTIONS (7)
  - ACCIDENTAL EXPOSURE [None]
  - CONVULSION [None]
  - EYE DISORDER [None]
  - MUSCLE SPASTICITY [None]
  - MUSCLE TWITCHING [None]
  - RESPIRATORY FUME INHALATION DISORDER [None]
  - TONGUE DISORDER [None]
